FAERS Safety Report 16568828 (Version 1)
Quarter: 2019Q3

REPORT INFORMATION
  Report Type: Spontaneous
  Country: DE (occurrence: DE)
  Receive Date: 20190713
  Receipt Date: 20190713
  Transmission Date: 20191004
  Serious: Yes (Hospitalization)
  Sender: FDA-Public Use
  Company Number: DE-TEVA-2019-DE-1076593

PATIENT
  Age: 49 Year
  Sex: Female

DRUGS (1)
  1. ACICLOVIR [Suspect]
     Active Substance: ACYCLOVIR
     Dosage: 850 MG, 1-1-1-1-1; SINCE 20/07/2017
     Dates: start: 20170720

REACTIONS (3)
  - General physical health deterioration [Unknown]
  - Dizziness [Unknown]
  - Asthenia [Unknown]
